FAERS Safety Report 15612571 (Version 1)
Quarter: 2018Q4

REPORT INFORMATION
  Report Type: Spontaneous
  Country: US (occurrence: US)
  Receive Date: 20181113
  Receipt Date: 20181113
  Transmission Date: 20190205
  Serious: Yes (Hospitalization, Other)
  Sender: FDA-Public Use
  Company Number: US-IMPAX LABORATORIES, LLC-2018-IPXL-03708

PATIENT
  Age: 19 Year
  Sex: Male

DRUGS (6)
  1. TERBUTALINE SULFATE. [Suspect]
     Active Substance: TERBUTALINE SULFATE
     Indication: STATUS ASTHMATICUS
     Dosage: UNK
     Route: 050
  2. METHYLPREDNISOLONE. [Suspect]
     Active Substance: METHYLPREDNISOLONE
     Indication: STATUS ASTHMATICUS
     Dosage: UNK
     Route: 065
  3. MAGNESIUM [Suspect]
     Active Substance: MAGNESIUM
     Indication: STATUS ASTHMATICUS
     Dosage: UNK
     Route: 042
  4. SEVOFLURANE. [Suspect]
     Active Substance: SEVOFLURANE
     Indication: STATUS ASTHMATICUS
     Dosage: UNK
     Route: 065
  5. KETAMINE [Suspect]
     Active Substance: KETAMINE
     Indication: STATUS ASTHMATICUS
     Dosage: UNK
     Route: 050
  6. ALBUTEROL                          /00139501/ [Suspect]
     Active Substance: ALBUTEROL
     Indication: STATUS ASTHMATICUS
     Dosage: UNK
     Route: 065

REACTIONS (4)
  - Hypoventilation [Recovering/Resolving]
  - Haemodynamic instability [Recovering/Resolving]
  - Drug ineffective [Unknown]
  - Dyspnoea [Recovering/Resolving]
